FAERS Safety Report 13415550 (Version 1)
Quarter: 2017Q2

REPORT INFORMATION
  Report Type: Spontaneous
  Country: US (occurrence: US)
  Receive Date: 20170407
  Receipt Date: 20170407
  Transmission Date: 20170830
  Serious: No
  Sender: FDA-Public Use
  Company Number: US-BAYER-2017-067395

PATIENT
  Age: 65 Year
  Sex: Male

DRUGS (1)
  1. GADAVIST [Suspect]
     Active Substance: GADOBUTROL
     Indication: PANCREATITIS
     Dosage: 10 ML, UNK
     Route: 042
     Dates: start: 20170405

REACTIONS (2)
  - Urticaria [Recovered/Resolved]
  - Rash papular [Recovered/Resolved]
